FAERS Safety Report 11323366 (Version 1)
Quarter: 2015Q3

REPORT INFORMATION
  Report Type: Spontaneous
  Country: US (occurrence: US)
  Receive Date: 20150730
  Receipt Date: 20150730
  Transmission Date: 20151125
  Serious: No
  Sender: FDA-Public Use
  Company Number: US-MYLANLABS-2015M1011871

PATIENT
  Age: 51 Year
  Sex: Female
  Weight: 69.25 kg

DRUGS (3)
  1. LEVOTHYROXINE SODIUM. [Suspect]
     Active Substance: LEVOTHYROXINE SODIUM
     Indication: HYPOTHYROIDISM
     Dosage: 75 ?G, UNK
  2. LEVOTHYROXINE SODIUM. [Suspect]
     Active Substance: LEVOTHYROXINE SODIUM
     Dosage: 75 ?G, UNK
  3. LEVOTHYROXINE SODIUM. [Suspect]
     Active Substance: LEVOTHYROXINE SODIUM
     Dosage: 150 ?G, UNK
     Route: 048

REACTIONS (20)
  - Gait disturbance [Recovered/Resolved]
  - Heart rate increased [Recovered/Resolved]
  - Nausea [Recovered/Resolved]
  - Muscle spasms [Recovered/Resolved]
  - Drug ineffective [Recovered/Resolved]
  - Tremor [Recovered/Resolved]
  - Alopecia [Unknown]
  - Dizziness [Recovered/Resolved]
  - Dyspepsia [Recovered/Resolved]
  - Reaction to drug excipients [Not Recovered/Not Resolved]
  - Expired product administered [Not Recovered/Not Resolved]
  - Dyspnoea [Recovered/Resolved]
  - Abdominal pain upper [Recovered/Resolved]
  - Gastrooesophageal reflux disease [Recovering/Resolving]
  - Asthma [Not Recovered/Not Resolved]
  - Hypoaesthesia [None]
  - Restrictive pulmonary disease [Not Recovered/Not Resolved]
  - Lethargy [Recovered/Resolved]
  - Headache [Recovered/Resolved]
  - Retching [Recovered/Resolved]

NARRATIVE: CASE EVENT DATE: 2014
